FAERS Safety Report 9057076 (Version 1)
Quarter: 2013Q1

REPORT INFORMATION
  Report Type: Spontaneous
  Country: IT (occurrence: IT)
  Receive Date: 20130131
  Receipt Date: 20130131
  Transmission Date: 20140127
  Serious: Yes (Other)
  Sender: FDA-Public Use
  Company Number: IT-PFIZER INC-2013034029

PATIENT
  Age: 86 Year
  Sex: Female

DRUGS (13)
  1. FUROSEMIDE [Suspect]
     Indication: HYPERTENSION
     Dosage: 25 MG, DAILY
  2. FUROSEMIDE [Suspect]
     Indication: RENAL IMPAIRMENT
     Dosage: 50 MG, DAILY
  3. FUROSEMIDE [Suspect]
     Dosage: 40 MG, UNK
     Route: 042
  4. METHYLPREDNISOLONE [Suspect]
     Indication: CHRONIC OBSTRUCTIVE PULMONARY DISEASE
     Dosage: 20 MG, DAILY
     Route: 030
  5. METHYLPREDNISOLONE [Suspect]
     Indication: COUGH
  6. METHYLPREDNISOLONE [Suspect]
     Indication: DYSPNOEA
  7. CIPROFLOXACIN HYDROCHLORIDE [Concomitant]
     Indication: CHRONIC OBSTRUCTIVE PULMONARY DISEASE
     Dosage: 500 MG, DAILY
     Route: 048
  8. CIPROFLOXACIN HYDROCHLORIDE [Concomitant]
     Indication: DYSPNOEA
  9. CIPROFLOXACIN HYDROCHLORIDE [Concomitant]
     Indication: COUGH
  10. CORTISONE [Concomitant]
     Indication: BRONCHITIS
     Dosage: UNK
  11. ACETYLCYSTEINE [Concomitant]
     Indication: CHRONIC OBSTRUCTIVE PULMONARY DISEASE
     Dosage: UNK
  12. ACETYLCYSTEINE [Concomitant]
     Indication: DYSPNOEA
  13. ACETYLCYSTEINE [Concomitant]
     Indication: COUGH

REACTIONS (3)
  - Hypocalcaemia [Recovering/Resolving]
  - Electrocardiogram QT prolonged [Recovering/Resolving]
  - Pulmonary oedema [Unknown]
